FAERS Safety Report 6898396-4 (Version None)
Quarter: 2010Q3

REPORT INFORMATION
  Report Type: 
  Country: None (occurrence: None)
  Receive Date: 20100802
  Receipt Date: 20071005
  Transmission Date: 20110219
  Serious: Yes (Other)
  Sender: FDA-Public Use
  Company Number: US-PFIZER INC-2007084342

PATIENT

DRUGS (2)
  1. LYRICA [Suspect]
  2. EXELON [Suspect]
     Route: 062

REACTIONS (1)
  - MENTAL IMPAIRMENT [None]
